FAERS Safety Report 15340907 (Version 2)
Quarter: 2019Q3

REPORT INFORMATION
  Report Type: Spontaneous
  Country: US (occurrence: US)
  Receive Date: 20180831
  Receipt Date: 20190724
  Transmission Date: 20191004
  Serious: No
  Sender: FDA-Public Use
  Company Number: US-SA-2018SA242507

PATIENT
  Age: 60 Year
  Sex: Female

DRUGS (2)
  1. REPATHA [Suspect]
     Active Substance: EVOLOCUMAB
     Dosage: UNK
  2. PRALUENT [Suspect]
     Active Substance: ALIROCUMAB
     Dosage: UNK

REACTIONS (1)
  - Alopecia [Unknown]
